FAERS Safety Report 22267987 (Version 1)
Quarter: 2023Q2

REPORT INFORMATION
  Report Type: Spontaneous
  Country: FR (occurrence: FR)
  Receive Date: 20230430
  Receipt Date: 20230430
  Transmission Date: 20230722
  Serious: Yes (Other)
  Sender: FDA-Public Use
  Company Number: None

PATIENT
  Age: 14 Year
  Sex: Male

DRUGS (7)
  1. VANCOMYCIN HYDROCHLORIDE [Suspect]
     Active Substance: VANCOMYCIN HYDROCHLORIDE
     Indication: Antibiotic prophylaxis
     Dosage: UNK (POSOLOGIE NON PRECISEE)
     Route: 042
     Dates: start: 20181107, end: 20181107
  2. MIDAZOLAM [Suspect]
     Active Substance: MIDAZOLAM
     Indication: Anaesthesia
     Dosage: UNK (POSOLOGIE NON PRECISEE)
     Route: 042
     Dates: start: 20181107, end: 20181107
  3. SUCCINYLCHOLINE [Suspect]
     Active Substance: SUCCINYLCHOLINE
     Indication: Anaesthesia
     Dosage: UNK (POSOLOGIE NON PRECISEE)
     Route: 042
     Dates: start: 20181107, end: 20181107
  4. DIPRIVAN [Suspect]
     Active Substance: PROPOFOL
     Indication: Anaesthesia
     Dosage: UNK (POSOLOGIE NON PRECISEE)
     Route: 042
     Dates: start: 20181107, end: 20181107
  5. KETALAR [Suspect]
     Active Substance: KETAMINE HYDROCHLORIDE
     Indication: Anaesthesia
     Dosage: UNK (POSOLOGIE NON PRECISEE)
     Route: 042
     Dates: start: 20181107, end: 20181107
  6. TRACRIUM [Suspect]
     Active Substance: ATRACURIUM BESYLATE
     Indication: Anaesthesia
     Dosage: UNK (POSOLOGIE NON PRECISEE)
     Route: 042
     Dates: start: 20181107, end: 20181107
  7. SUFENTANIL [Suspect]
     Active Substance: SUFENTANIL
     Indication: Anaesthesia
     Dosage: UNK (POSOLOGIE NON PRECISEE)
     Route: 042
     Dates: start: 20181107, end: 20181107

REACTIONS (3)
  - Hypotension [Recovered/Resolved]
  - Tachycardia [Recovered/Resolved]
  - Erythema [Recovered/Resolved]

NARRATIVE: CASE EVENT DATE: 20181107
